FAERS Safety Report 4375011-5 (Version None)
Quarter: 2004Q2

REPORT INFORMATION
  Report Type: 
  Country: None (occurrence: None)
  Receive Date: 20040604
  Receipt Date: 20040519
  Transmission Date: 20050107
  Serious: Yes (Hospitalization)
  Sender: FDA-Public Use
  Company Number: 2004-DE-03143GL

PATIENT
  Age: 84 Year
  Sex: Female

DRUGS (6)
  1. TELMI SARTAN (TELMISARTAN) [Suspect]
     Route: 048
  2. PREDNISONE TAB [Suspect]
  3. BUFLOMEDIL HYDROCHLORIDE [Suspect]
     Dates: start: 20040401
  4. PRAVASTATIN SODIUM [Suspect]
     Route: 048
  5. CLOPIDOGREL BISULFATE [Suspect]
     Route: 048
     Dates: start: 20040401
  6. NOCTRAN(TA) [Suspect]
     Route: 048

REACTIONS (1)
  - PANCYTOPENIA [None]
